FAERS Safety Report 5815764-X (Version None)
Quarter: 2008Q3

REPORT INFORMATION
  Report Type: 
  Country: None (occurrence: None)
  Receive Date: 20080721
  Receipt Date: 20080710
  Transmission Date: 20090109
  Serious: Yes (Death, Other)
  Sender: FDA-Public Use
  Company Number: US-BAYER-200827679NA

PATIENT
  Sex: Male

DRUGS (5)
  1. MAGNEVIST [Suspect]
     Indication: NUCLEAR MAGNETIC RESONANCE IMAGING
     Dates: start: 20031101, end: 20031101
  2. MAGNEVIST [Suspect]
     Dates: start: 20050301, end: 20050301
  3. MAGNEVIST [Suspect]
     Dates: start: 20051001, end: 20051001
  4. MAGNEVIST [Suspect]
     Dates: start: 20060101, end: 20060101
  5. MAGNEVIST [Suspect]
     Dates: start: 20060801, end: 20060801

REACTIONS (6)
  - ANXIETY [None]
  - FIBROSIS [None]
  - INJURY [None]
  - NEPHROGENIC SYSTEMIC FIBROSIS [None]
  - PAIN [None]
  - PULMONARY FIBROSIS [None]
